FAERS Safety Report 21855013 (Version 2)
Quarter: 2023Q1

REPORT INFORMATION
  Report Type: Spontaneous
  Country: IT (occurrence: IT)
  Receive Date: 20230112
  Receipt Date: 20230123
  Transmission Date: 20230418
  Serious: Yes (Other)
  Sender: FDA-Public Use
  Company Number: IT-TEVA-2023-IT-2844212

PATIENT
  Age: 3 Year
  Sex: Male

DRUGS (4)
  1. IBUPROFEN [Suspect]
     Active Substance: IBUPROFEN
     Indication: Hyperthermia
     Route: 065
  2. ACETAMINOPHEN [Suspect]
     Active Substance: ACETAMINOPHEN
     Indication: Hyperthermia
     Route: 065
  3. COMIRNATY [Suspect]
     Active Substance: TOZINAMERAN
     Indication: COVID-19 immunisation
     Dosage: THE FIRST DOSE OF TOZINAMERAN VACCINE
     Route: 065
     Dates: start: 20220111
  4. COMIRNATY [Suspect]
     Active Substance: TOZINAMERAN
     Dosage: THE SECOND DOSE OF TOZINAMERAN VACCINE
     Route: 065
     Dates: start: 20220205

REACTIONS (11)
  - Hypothermia [Recovered/Resolved]
  - Vaccination site pain [Unknown]
  - Pain in extremity [Unknown]
  - Idiosyncratic drug reaction [Recovered/Resolved]
  - Abdominal pain [Recovering/Resolving]
  - Eye pain [Recovering/Resolving]
  - Thirst [Recovering/Resolving]
  - Polydipsia [Recovering/Resolving]
  - Polyuria [Recovering/Resolving]
  - Muscle tightness [Recovering/Resolving]
  - Drug ineffective [Unknown]

NARRATIVE: CASE EVENT DATE: 20220101
